FAERS Safety Report 10356165 (Version 5)
Quarter: 2014Q4

REPORT INFORMATION
  Report Type: Spontaneous
  Country: CZ (occurrence: CZ)
  Receive Date: 20140801
  Receipt Date: 20141104
  Transmission Date: 20150528
  Serious: Yes (Death)
  Sender: FDA-Public Use
  Company Number: CZ-AMGEN-CZESP2014058265

PATIENT
  Age: 38 Year
  Sex: Male

DRUGS (3)
  1. IBALGIN [Concomitant]
     Active Substance: IBUPROFEN
     Dosage: 400 MG, AS NEEDED, USED RARELY
     Route: 048
  2. KATONAL [Concomitant]
     Dosage: 150 MG, AS NEEDED
     Route: 048
  3. ENBREL [Suspect]
     Active Substance: ETANERCEPT
     Indication: ANKYLOSING SPONDYLITIS
     Dosage: 50 MG, WEEKLY
     Route: 058
     Dates: start: 20090925, end: 20140704

REACTIONS (2)
  - Cardiac failure [Fatal]
  - Arteriosclerosis coronary artery [Fatal]

NARRATIVE: CASE EVENT DATE: 20140709
